FAERS Safety Report 16202637 (Version 1)
Quarter: 2019Q2

REPORT INFORMATION
  Report Type: Spontaneous
  Country: US (occurrence: US)
  Receive Date: 20190416
  Receipt Date: 20190416
  Transmission Date: 20190711
  Serious: No
  Sender: FDA-Public Use
  Company Number: US-PFIZER INC-2019159199

PATIENT
  Age: 71 Year
  Sex: Female
  Weight: 108.86 kg

DRUGS (1)
  1. LYRICA [Suspect]
     Active Substance: PREGABALIN
     Indication: SCIATICA
     Dosage: 50 MG, 1X/DAY (FOR 2 DAYS)
     Route: 048
     Dates: start: 201903, end: 201903

REACTIONS (3)
  - Pain in extremity [Unknown]
  - Hypoaesthesia [Recovered/Resolved]
  - Breath sounds abnormal [Unknown]

NARRATIVE: CASE EVENT DATE: 201903
